FAERS Safety Report 25708879 (Version 1)
Quarter: 2025Q3

REPORT INFORMATION
  Report Type: Spontaneous
  Country: GB (occurrence: GB)
  Receive Date: 20250821
  Receipt Date: 20250821
  Transmission Date: 20251020
  Serious: Yes (Death)
  Sender: PRECISION DOSE, INC.
  Company Number: GB-PRECISION DOSE, INC.-2025PRD00006

PATIENT
  Age: 76 Year
  Sex: Female

DRUGS (2)
  1. DOXYCYCLINE [Suspect]
     Active Substance: DOXYCYCLINE
     Indication: Rash pruritic
  2. FLUCLOXACILLIN [Suspect]
     Active Substance: FLUCLOXACILLIN
     Indication: Rash pruritic

REACTIONS (1)
  - Toxic epidermal necrolysis [Fatal]
